FAERS Safety Report 18435903 (Version 1)
Quarter: 2020Q4

REPORT INFORMATION
  Report Type: Spontaneous
  Country: FR (occurrence: FR)
  Receive Date: 20201028
  Receipt Date: 20201028
  Transmission Date: 20210114
  Serious: Yes (Death)
  Sender: FDA-Public Use
  Company Number: FR-FRESENIUS KABI-FK202011087

PATIENT
  Age: 36 Year
  Sex: Female

DRUGS (10)
  1. BEVACIZUMAB. [Suspect]
     Active Substance: BEVACIZUMAB
     Dates: start: 20200515, end: 20200515
  2. BEVACIZUMAB. [Suspect]
     Active Substance: BEVACIZUMAB
     Dates: start: 20200415, end: 20200415
  3. CARBOPLATIN (MANUFACTURER UNKNOWN) [Suspect]
     Active Substance: CARBOPLATIN
     Indication: PRODUCT USED FOR UNKNOWN INDICATION
     Route: 065
     Dates: start: 20200724, end: 20200724
  4. PACLITAXEL ALBUMIN [Suspect]
     Active Substance: PACLITAXEL
     Dates: start: 20200421, end: 20200421
  5. BEVACIZUMAB. [Suspect]
     Active Substance: BEVACIZUMAB
     Indication: PRODUCT USED FOR UNKNOWN INDICATION
     Dosage: INFUSION, SOLUTION
     Route: 065
     Dates: start: 20200528, end: 20200528
  6. GEMCITABINE. [Suspect]
     Active Substance: GEMCITABINE
     Indication: PRODUCT USED FOR UNKNOWN INDICATION
     Route: 065
     Dates: start: 20200724, end: 20200724
  7. PACLITAXEL ALBUMIN [Suspect]
     Active Substance: PACLITAXEL
     Indication: PRODUCT USED FOR UNKNOWN INDICATION
     Route: 065
     Dates: start: 20200618, end: 20200618
  8. PACLITAXEL ALBUMIN [Suspect]
     Active Substance: PACLITAXEL
     Dates: start: 20200604, end: 20200604
  9. PACLITAXEL ALBUMIN [Suspect]
     Active Substance: PACLITAXEL
     Dates: start: 20200515, end: 20200515
  10. PACLITAXEL ALBUMIN [Suspect]
     Active Substance: PACLITAXEL
     Dates: start: 20200528, end: 20200528

REACTIONS (1)
  - Anaphylactic shock [Fatal]
